FAERS Safety Report 9202421 (Version 1)
Quarter: 2013Q2

REPORT INFORMATION
  Report Type: Spontaneous
  Country: DE (occurrence: DE)
  Receive Date: 20130401
  Receipt Date: 20130401
  Transmission Date: 20140414
  Serious: Yes (Hospitalization)
  Sender: FDA-Public Use
  Company Number: DE-TEVA-394030GER

PATIENT
  Age: 73 Year
  Sex: Female

DRUGS (1)
  1. SIMVASTATIN [Suspect]
     Indication: HYPERCHOLESTEROLAEMIA
     Dosage: 40 MILLIGRAM DAILY; 0-0-1; 40 MG DAILY
     Route: 048
     Dates: start: 20130109, end: 20130203

REACTIONS (5)
  - Sciatica [Unknown]
  - Rheumatic disorder [Unknown]
  - Polymyalgia rheumatica [Unknown]
  - Myalgia [Recovering/Resolving]
  - Movement disorder [Recovering/Resolving]
